FAERS Safety Report 25831852 (Version 1)
Quarter: 2025Q3

REPORT INFORMATION
  Report Type: Spontaneous
  Country: US (occurrence: None)
  Receive Date: 20250921
  Receipt Date: 20250921
  Transmission Date: 20251021
  Serious: Yes (Life-Threatening)
  Sender: FDA-CTU
  Company Number: None

PATIENT
  Age: 65 Year
  Sex: Female
  Weight: 67.5 kg

DRUGS (4)
  1. DIETARY SUPPLEMENT\HERBALS [Suspect]
     Active Substance: DIETARY SUPPLEMENT\HERBALS
  2. VITAMIN D NOS [Concomitant]
     Active Substance: CHOLECALCIFEROL\ERGOCALCIFEROL
  3. POTASSIUM [Concomitant]
     Active Substance: POTASSIUM
  4. B12 [Concomitant]

REACTIONS (3)
  - Electric shock sensation [None]
  - Loss of consciousness [None]
  - Impaired driving ability [None]

NARRATIVE: CASE EVENT DATE: 20250920
